FAERS Safety Report 23483307 (Version 4)
Quarter: 2024Q2

REPORT INFORMATION
  Report Type: Spontaneous
  Country: US (occurrence: US)
  Receive Date: 20240205
  Receipt Date: 20240405
  Transmission Date: 20240716
  Serious: Yes (Other)
  Sender: FDA-Public Use
  Company Number: US-PFIZER INC-PV202200094254

PATIENT
  Age: 81 Year
  Sex: Male

DRUGS (2)
  1. XELJANZ [Suspect]
     Active Substance: TOFACITINIB CITRATE
     Indication: Osteoarthritis
     Dosage: 5 MG, ALTERNATE DAY
     Route: 048
  2. XELJANZ [Suspect]
     Active Substance: TOFACITINIB CITRATE
     Indication: Polyarthritis
     Dosage: XELJANZ 5 MG - 1 TWICE A DAY ON ONE DAY, ALTERNATING WITH THEN NEXT DAY 2 TAB QD
     Route: 048

REACTIONS (3)
  - Polyarthritis [Unknown]
  - Off label use [Unknown]
  - Off label use [Unknown]
